FAERS Safety Report 12903125 (Version 1)
Quarter: 2016Q4

REPORT INFORMATION
  Report Type: Spontaneous
  Country: JP (occurrence: JP)
  Receive Date: 20161102
  Receipt Date: 20161102
  Transmission Date: 20170207
  Serious: Yes (Other)
  Sender: FDA-Public Use
  Company Number: JP-PFIZER INC-2016499227

PATIENT
  Age: 52 Year
  Sex: Male
  Weight: 59.9 kg

DRUGS (10)
  1. ENDOXAN [Concomitant]
     Active Substance: CYCLOPHOSPHAMIDE
     Dosage: UNK
     Dates: start: 20161013
  2. METHOTREXATE. [Suspect]
     Active Substance: METHOTREXATE
     Dosage: 3580 MG, DAILY
     Route: 041
     Dates: start: 20161013, end: 20161013
  3. LEUCOVORIN. [Concomitant]
     Active Substance: LEUCOVORIN
     Dosage: UNK UNK, AS NEEDED
  4. METHOTREXATE. [Suspect]
     Active Substance: METHOTREXATE
     Dosage: 3580 MG, DAILY
     Route: 041
     Dates: start: 20161012, end: 20161012
  5. ONCOVIN [Concomitant]
     Active Substance: VINCRISTINE SULFATE
     Dosage: UNK
     Dates: start: 20161012
  6. UROMITEXAN [Concomitant]
     Active Substance: MESNA
     Dosage: UNK UNK, AS NEEDED
  7. DIAMOX SEQUELS [Concomitant]
     Active Substance: ACETAZOLAMIDE
     Dosage: UNK UNK, AS NEEDED
  8. METHOTREXATE. [Suspect]
     Active Substance: METHOTREXATE
     Indication: LYMPHOMA
     Dosage: 790 MG, DAILY
     Route: 041
     Dates: start: 20161012, end: 20161012
  9. CYLOCIDE [Concomitant]
     Active Substance: CYTARABINE
     Dosage: UNK
     Dates: end: 20161018
  10. RITUXAN [Concomitant]
     Active Substance: RITUXIMAB
     Dosage: UNK
     Dates: start: 20161011

REACTIONS (2)
  - Duodenal perforation [Recovering/Resolving]
  - Peritonitis [Recovering/Resolving]

NARRATIVE: CASE EVENT DATE: 20161019
